FAERS Safety Report 13007076 (Version 1)
Quarter: 2016Q4

REPORT INFORMATION
  Report Type: Spontaneous
  Country: CH (occurrence: CH)
  Receive Date: 20161207
  Receipt Date: 20161207
  Transmission Date: 20170207
  Serious: Yes (Other)
  Sender: FDA-Public Use
  Company Number: CH-PFIZER INC-2016567266

PATIENT
  Age: 25 Year
  Sex: Female
  Weight: 69 kg

DRUGS (10)
  1. DAUNOBLASTIN [Suspect]
     Active Substance: DAUNORUBICIN HYDROCHLORIDE
     Indication: REFRACTORY ANAEMIA WITH AN EXCESS OF BLASTS
     Dosage: 60 MG/M2, 1X/DAY
     Route: 041
     Dates: start: 20160415, end: 20160417
  2. DIPROPHOS [Suspect]
     Active Substance: BECLOMETHASONE DIPROPIONATE\BETAMETHASONE SODIUM PHOSPHATE
     Indication: NEONATAL RESPIRATORY DISTRESS SYNDROME PROPHYLAXIS
     Dosage: 2 ML, UNK
     Route: 030
     Dates: start: 20160414, end: 20160415
  3. FLUCONAZOLE. [Suspect]
     Active Substance: FLUCONAZOLE
     Dosage: UNK
     Route: 048
     Dates: start: 201604, end: 201605
  4. ADALAT CRONO [Suspect]
     Active Substance: NIFEDIPINE
     Indication: TOCOLYSIS
     Dosage: 30 MG, 2X/DAY
     Dates: start: 20160415, end: 20160510
  5. CYTOSAR [Suspect]
     Active Substance: CYTARABINE
     Indication: REFRACTORY ANAEMIA WITH AN EXCESS OF BLASTS
     Dosage: 200 MG/M2, 1X/DAY
     Route: 041
     Dates: start: 20160415, end: 20160421
  6. EMEND [Suspect]
     Active Substance: APREPITANT
     Dosage: 80 MG, 1X/DAY
     Route: 064
     Dates: start: 20160416, end: 20160417
  7. ZYLORIC [Suspect]
     Active Substance: ALLOPURINOL
     Indication: HYPERURICAEMIA
     Dosage: 300 MG, 1X/DAY
     Route: 048
     Dates: start: 20160415, end: 20160422
  8. EMEND [Suspect]
     Active Substance: APREPITANT
     Indication: PROPHYLAXIS OF NAUSEA AND VOMITING
     Dosage: 125 MG, 1X/DAY
     Route: 048
     Dates: start: 20160415, end: 20160415
  9. VALTREX [Suspect]
     Active Substance: VALACYCLOVIR HYDROCHLORIDE
     Indication: ANTIVIRAL PROPHYLAXIS
     Dosage: UNK
     Route: 048
     Dates: start: 201604, end: 201605
  10. LAXOBERON [Suspect]
     Active Substance: SODIUM PICOSULFATE
     Dosage: 10 GTT, 1X/DAY
     Dates: start: 20160416, end: 201605

REACTIONS (1)
  - Metrorrhagia [Unknown]

NARRATIVE: CASE EVENT DATE: 20160517
